FAERS Safety Report 5460562-2 (Version None)
Quarter: 2007Q3

REPORT INFORMATION
  Report Type: 
  Country: None (occurrence: None)
  Receive Date: 20070919
  Receipt Date: 20070913
  Transmission Date: 20080115
  Serious: Yes (Other)
  Sender: FDA-Public Use
  Company Number: US-PFIZER INC-2007057034

PATIENT
  Sex: Female
  Weight: 109.09 kg

DRUGS (4)
  1. CELEBREX [Suspect]
     Indication: OSTEOPOROSIS
  2. ALL OTHER THERAPEUTIC PRODUCTS [Concomitant]
  3. GLYBURIDE [Concomitant]
  4. ACTOS [Concomitant]

REACTIONS (2)
  - BACK DISORDER [None]
  - SPINAL DISORDER [None]
